FAERS Safety Report 8797173 (Version 4)
Quarter: 2012Q4

REPORT INFORMATION
  Report Type: Report from Study
  Country: US (occurrence: US)
  Receive Date: 20120920
  Receipt Date: 20121121
  Transmission Date: 20130627
  Serious: Yes (Hospitalization)
  Sender: FDA-Public Use
  Company Number: US-JNJFOC-20120907794

PATIENT
  Age: 16 Year
  Sex: Female
  Weight: 51.2 kg

DRUGS (10)
  1. REMICADE [Suspect]
     Indication: INFLAMMATORY BOWEL DISEASE
     Route: 042
     Dates: start: 20071108
  2. REMICADE [Suspect]
     Indication: INFLAMMATORY BOWEL DISEASE
     Route: 042
     Dates: start: 20071108
  3. COLOCORT [Concomitant]
     Dosage: dose: 100mg/60 mL enema
     Route: 054
  4. MULTIVITAMINS [Concomitant]
     Route: 048
  5. TUMS E-X [Concomitant]
     Dosage: 300 mg elemental calcium
  6. ROBITUSSIN AC [Concomitant]
  7. COLAZAL [Concomitant]
  8. COLOCORT [Concomitant]
  9. CULTURELLE [Concomitant]
  10. ZINCATE [Concomitant]

REACTIONS (1)
  - Crohn^s disease [Recovered/Resolved]
